FAERS Safety Report 25879903 (Version 2)
Quarter: 2025Q4

REPORT INFORMATION
  Report Type: Spontaneous
  Country: GB (occurrence: GB)
  Receive Date: 20251004
  Receipt Date: 20251104
  Transmission Date: 20260118
  Serious: Yes (Hospitalization, Other)
  Sender: CELLTRION
  Company Number: GB-CELLTRION INC.-2025GB035443

PATIENT

DRUGS (1)
  1. INFLIXIMAB [Suspect]
     Active Substance: INFLIXIMAB
     Indication: Crohn^s disease
     Dosage: 120 MG EVERY 2 WEEKS
     Route: 058
     Dates: start: 202507

REACTIONS (2)
  - Wound [Unknown]
  - Impaired healing [Unknown]
